FAERS Safety Report 11749804 (Version 1)
Quarter: 2015Q4

REPORT INFORMATION
  Report Type: Spontaneous
  Country: US (occurrence: None)
  Receive Date: 20151117
  Receipt Date: 20151117
  Transmission Date: 20160304
  Serious: Yes (Other)
  Sender: FDA-Public Use
  Company Number: None

PATIENT
  Age: 47 Year
  Sex: Male

DRUGS (3)
  1. GLIPIZIDE. [Concomitant]
     Active Substance: GLIPIZIDE
  2. TOUJEO [Concomitant]
     Active Substance: INSULIN GLARGINE
  3. GLIPIZIDE. [Suspect]
     Active Substance: GLIPIZIDE

REACTIONS (3)
  - Cholecystectomy [None]
  - Liver disorder [None]
  - Renal disorder [None]
